FAERS Safety Report 5932443-9 (Version None)
Quarter: 2008Q4

REPORT INFORMATION
  Report Type: 
  Country: None (occurrence: None)
  Receive Date: 20081027
  Receipt Date: 20081027
  Transmission Date: 20090506
  Serious: No
  Sender: FDA-Public Use
  Company Number: None

PATIENT
  Age: 40 Year
  Sex: Male
  Weight: 58.9676 kg

DRUGS (1)
  1. PYRIDOSTIGMINE 60MG ? [Suspect]
     Indication: MYASTHENIA GRAVIS
     Dosage: 1 4 TIMES A DAY PO
     Route: 048
     Dates: start: 20050101, end: 20081026

REACTIONS (1)
  - PRODUCT QUALITY ISSUE [None]
